FAERS Safety Report 13673443 (Version 1)
Quarter: 2017Q2

REPORT INFORMATION
  Report Type: Spontaneous
  Country: US (occurrence: US)
  Receive Date: 20170621
  Receipt Date: 20170621
  Transmission Date: 20170830
  Serious: No
  Sender: FDA-Public Use
  Company Number: US-ASTRAZENECA-2017SE64381

PATIENT
  Sex: Male

DRUGS (4)
  1. ZURAMPIC [Suspect]
     Active Substance: LESINURAD
     Indication: HYPERURICAEMIA
     Route: 048
  2. ZURAMPIC [Suspect]
     Active Substance: LESINURAD
     Indication: BLOOD URIC ACID INCREASED
     Route: 048
  3. ALLOPURINOL. [Concomitant]
     Active Substance: ALLOPURINOL
     Indication: HYPERURICAEMIA
  4. ALLOPURINOL. [Concomitant]
     Active Substance: ALLOPURINOL
     Indication: BLOOD URIC ACID INCREASED

REACTIONS (4)
  - Malaise [Unknown]
  - Peripheral swelling [Unknown]
  - Feeling abnormal [Unknown]
  - Fatigue [Unknown]
